FAERS Safety Report 7350704-6 (Version None)
Quarter: 2011Q1

REPORT INFORMATION
  Report Type: 
  Country: None (occurrence: None)
  Receive Date: 20110314
  Receipt Date: 20110307
  Transmission Date: 20110831
  Serious: Yes (Hospitalization, Other)
  Sender: FDA-Public Use
  Company Number: US-JNJFOC-20100900814

PATIENT
  Sex: Male
  Weight: 68.04 kg

DRUGS (3)
  1. PREDNISONE [Suspect]
     Indication: PRODUCT USED FOR UNKNOWN INDICATION
     Route: 065
  2. STEROIDS NOS [Suspect]
     Indication: ILL-DEFINED DISORDER
     Route: 065
  3. LEVAQUIN [Suspect]
     Indication: INFLAMMATION
     Route: 048

REACTIONS (8)
  - TENDONITIS [None]
  - OFF LABEL USE [None]
  - ARTHRALGIA [None]
  - TENDON RUPTURE [None]
  - JOINT SWELLING [None]
  - PAIN IN EXTREMITY [None]
  - CONTUSION [None]
  - ERYTHEMA [None]
